FAERS Safety Report 15568772 (Version 1)
Quarter: 2018Q4

REPORT INFORMATION
  Report Type: Spontaneous
  Country: US (occurrence: US)
  Receive Date: 20181031
  Receipt Date: 20181031
  Transmission Date: 20190205
  Serious: No
  Sender: FDA-Public Use
  Company Number: US-ELI_LILLY_AND_COMPANY-US201810010280

PATIENT
  Age: 65 Year
  Sex: Male

DRUGS (2)
  1. CIALIS [Suspect]
     Active Substance: TADALAFIL
     Indication: ERECTILE DYSFUNCTION
     Dosage: 1 DF, 3/W
     Route: 065
  2. CIALIS [Suspect]
     Active Substance: TADALAFIL
     Dosage: UNK UNK, DAILY
     Route: 065

REACTIONS (5)
  - Abdominal discomfort [Unknown]
  - Nasal congestion [Unknown]
  - Headache [Unknown]
  - Wrong technique in product usage process [Unknown]
  - Fatigue [Unknown]
